FAERS Safety Report 12425558 (Version 2)
Quarter: 2016Q3

REPORT INFORMATION
  Report Type: Report from Study
  Country: DE (occurrence: DE)
  Receive Date: 20160601
  Receipt Date: 20160706
  Transmission Date: 20161109
  Serious: Yes (Other)
  Sender: FDA-Public Use
  Company Number: PHHY2016DE057790

PATIENT
  Sex: Female
  Weight: 64 kg

DRUGS (7)
  1. DESFERAL [Suspect]
     Active Substance: DEFEROXAMINE MESYLATE
     Indication: MYELODYSPLASTIC SYNDROME
     Dosage: 250 ML, QD (31.0 MG PER KG BODY WEIGHT PER DAY)
     Route: 042
     Dates: start: 20160309
  2. VIDAZA [Concomitant]
     Active Substance: AZACITIDINE
     Indication: MYELODYSPLASTIC SYNDROME
     Dosage: 127 MG, QD (7 TIMES A WEEK, EVERY 4 WEEKS)
     Route: 042
     Dates: start: 201503
  3. CELLONDAN [Concomitant]
     Indication: PRODUCT USED FOR UNKNOWN INDICATION
     Dosage: 4 MG, QD (7 TIMES A WEEK EVERY 4 WEEKS)
     Route: 065
     Dates: start: 20150323
  4. METOCLOPRAMIDE. [Concomitant]
     Active Substance: METOCLOPRAMIDE
     Indication: PRODUCT USED FOR UNKNOWN INDICATION
     Dosage: 20 MG, QD
     Route: 065
     Dates: start: 20150323
  5. EXEMESTAN [Concomitant]
     Active Substance: EXEMESTANE
     Indication: BREAST CANCER
     Dosage: 25 MG, QD
     Route: 065
     Dates: start: 201509
  6. RAMIPRIL COMP [Concomitant]
     Active Substance: HYDROCHLOROTHIAZIDE\RAMIPRIL
     Indication: AORTIC STENOSIS
     Dosage: 1 DF, QD (2.5/12.5)1/2 TABLET
     Route: 065
  7. BISOPROLOL [Concomitant]
     Active Substance: BISOPROLOL
     Indication: AORTIC STENOSIS
     Dosage: 2.5 MG, QD
     Route: 065

REACTIONS (4)
  - Anaemia [Recovering/Resolving]
  - Fatigue [Recovering/Resolving]
  - Leukopenia [Not Recovered/Not Resolved]
  - Thrombocytopenia [Recovering/Resolving]

NARRATIVE: CASE EVENT DATE: 20160318
